FAERS Safety Report 5079374-7 (Version None)
Quarter: 2006Q3

REPORT INFORMATION
  Report Type: 
  Country: None (occurrence: None)
  Receive Date: 20060808
  Receipt Date: 20060801
  Transmission Date: 20061208
  Serious: Yes (Death, Hospitalization)
  Sender: FDA-Public Use
  Company Number: 2006RR-03140

PATIENT
  Age: 91 Year
  Sex: Female

DRUGS (4)
  1. DICLOFENAC SODIUM [Suspect]
     Indication: OSTEOARTHRITIS
  2. BUMETANIDE [Suspect]
     Indication: HYPERTENSION
  3. IBUPROFEN [Suspect]
     Indication: OSTEOARTHRITIS
  4. SPIRONOLACTONE (SPIRONOLACTONE, SPIRONOLACTONE) TABLET [Suspect]
     Indication: HYPERTENSION

REACTIONS (3)
  - BLOOD POTASSIUM INCREASED [None]
  - DRUG TOXICITY [None]
  - RENAL FAILURE [None]
